FAERS Safety Report 13766048 (Version 2)
Quarter: 2017Q4

REPORT INFORMATION
  Report Type: Spontaneous
  Country: US (occurrence: US)
  Receive Date: 20170718
  Receipt Date: 20171003
  Transmission Date: 20180320
  Serious: No
  Sender: FDA-Public Use
  Company Number: US-GALDERMA-US17004319

PATIENT
  Sex: Female

DRUGS (11)
  1. ACTICLATE [Concomitant]
     Active Substance: DOXYCYCLINE HYCLATE
     Indication: ROSACEA
     Route: 048
     Dates: start: 201601
  2. SALAGEN [Concomitant]
     Active Substance: PILOCARPINE HYDROCHLORIDE
  3. ANTIHISTAMINE [Concomitant]
     Active Substance: ANTIHISTAMINES NOS
  4. FINACEA [Concomitant]
     Active Substance: AZELAIC ACID
     Indication: ROSACEA
     Dosage: 15%
     Route: 061
  5. SEABUCKTHORN TEA [Concomitant]
     Indication: ROSACEA
  6. PLAQUENIL [Concomitant]
     Active Substance: HYDROXYCHLOROQUINE SULFATE
  7. LUTEIN [Concomitant]
     Active Substance: LUTEIN
     Route: 048
  8. MSM CRYSTALS [Concomitant]
     Dates: start: 201601
  9. RELAFEN [Concomitant]
     Active Substance: NABUMETONE
  10. SOOLANTRA [Suspect]
     Active Substance: IVERMECTIN
     Indication: ROSACEA
     Dosage: 1%
     Route: 061
     Dates: start: 201601
  11. CALCIUM [Concomitant]
     Active Substance: CALCIUM

REACTIONS (9)
  - Muscle twitching [Recovered/Resolved]
  - Incorrect dose administered [Recovered/Resolved]
  - Lip pain [Recovered/Resolved]
  - Drug ineffective [Unknown]
  - Paraesthesia oral [Recovered/Resolved]
  - Burning sensation [Unknown]
  - Swelling face [Unknown]
  - Neuropathy peripheral [Unknown]
  - Intentional product misuse [Recovered/Resolved]

NARRATIVE: CASE EVENT DATE: 2016
